FAERS Safety Report 7642000-4 (Version None)
Quarter: 2011Q3

REPORT INFORMATION
  Report Type: 
  Country: None (occurrence: None)
  Receive Date: 20110727
  Receipt Date: 20110727
  Transmission Date: 20111222
  Serious: Yes (Hospitalization)
  Sender: FDA-Public Use
  Company Number: None

PATIENT
  Age: 62 Year
  Sex: Female
  Weight: 45.5 kg

DRUGS (2)
  1. CAPECITABINE [Suspect]
     Indication: PANCREATIC CARCINOMA
     Dosage: 1500 MG BID PO
     Route: 048
     Dates: start: 20110615, end: 20110621
  2. ERLOTINIB HYDROCHLORIDE [Suspect]
     Indication: PANCREATIC CARCINOMA
     Dosage: 100 MG EVERY DAY PO
     Route: 048
     Dates: start: 20110523, end: 20110621

REACTIONS (7)
  - ABDOMINAL PAIN LOWER [None]
  - ASTHENIA [None]
  - DECREASED APPETITE [None]
  - VOMITING [None]
  - PAIN [None]
  - NAUSEA [None]
  - DEHYDRATION [None]
